FAERS Safety Report 16229017 (Version 2)
Quarter: 2019Q2

REPORT INFORMATION
  Report Type: Spontaneous
  Country: JP (occurrence: JP)
  Receive Date: 20190423
  Receipt Date: 20190425
  Transmission Date: 20190711
  Serious: No
  Sender: FDA-Public Use
  Company Number: JP-ASTELLAS-2019JP004255

PATIENT
  Sex: Male

DRUGS (1)
  1. XTANDI [Suspect]
     Active Substance: ENZALUTAMIDE
     Indication: PRODUCT USED FOR UNKNOWN INDICATION
     Dosage: UNK, UNKNOWN FREQ.
     Route: 048

REACTIONS (1)
  - Diarrhoea [Unknown]
